FAERS Safety Report 6156159-1 (Version None)
Quarter: 2009Q2

REPORT INFORMATION
  Report Type: 
  Country: None (occurrence: None)
  Receive Date: 20090415
  Receipt Date: 20090410
  Transmission Date: 20091009
  Serious: Yes (Death)
  Sender: FDA-Public Use
  Company Number: PHHY2009FR13908

PATIENT
  Age: 84 Year
  Sex: Female

DRUGS (5)
  1. EXELON [Suspect]
     Indication: DEMENTIA ALZHEIMER'S TYPE
     Dosage: 4.6 MG
     Route: 062
  2. EXELON [Suspect]
     Dosage: 9.5 MG
     Route: 062
  3. ACEBUTOLOL [Concomitant]
     Dosage: UNK
  4. ESIDRIX [Concomitant]
     Dosage: UNK
  5. COLLYRIUM [Concomitant]

REACTIONS (2)
  - MALAISE [None]
  - SUDDEN DEATH [None]
